FAERS Safety Report 9977446 (Version 1)
Quarter: 2014Q1

REPORT INFORMATION
  Report Type: Report from Study
  Country: US (occurrence: US)
  Receive Date: 20140306
  Receipt Date: 20140306
  Transmission Date: 20141002
  Serious: Yes (Hospitalization)
  Sender: FDA-Public Use
  Company Number: US-ABBVIE-13P-163-1162407-00

PATIENT
  Age: 52 Year
  Sex: Female
  Weight: 95.34 kg

DRUGS (7)
  1. HUMIRA [Suspect]
     Indication: PSORIASIS
     Dates: start: 20131016, end: 20131016
  2. ATARAX [Concomitant]
     Indication: PRURITUS
  3. ATARAX [Concomitant]
     Indication: PSORIASIS
  4. METOPROLOL [Concomitant]
     Indication: HYPERTENSION
  5. SINGULAIR [Concomitant]
     Indication: WHEEZING
  6. SINGULAIR [Concomitant]
     Indication: ASTHMA
  7. FLUOXETINE [Concomitant]
     Indication: PREMENSTRUAL SYNDROME

REACTIONS (7)
  - Cellulitis [Not Recovered/Not Resolved]
  - Influenza like illness [Recovered/Resolved]
  - Local swelling [Not Recovered/Not Resolved]
  - Feeling hot [Recovered/Resolved]
  - Erythema [Recovered/Resolved]
  - Pain in extremity [Not Recovered/Not Resolved]
  - Infection [Unknown]
